FAERS Safety Report 23637460 (Version 2)
Quarter: 2024Q1

REPORT INFORMATION
  Report Type: Spontaneous
  Country: AU (occurrence: AU)
  Receive Date: 20240315
  Receipt Date: 20240321
  Transmission Date: 20240409
  Serious: Yes (Other)
  Sender: FDA-Public Use
  Company Number: AU-Merck Healthcare KGaA-2024013895

PATIENT
  Sex: Female

DRUGS (4)
  1. MAVENCLAD [Suspect]
     Active Substance: CLADRIBINE
     Indication: Multiple sclerosis
     Dosage: YEAR ONE FIRST CYCLE THERAPY
     Route: 048
     Dates: start: 20210302
  2. MAVENCLAD [Suspect]
     Active Substance: CLADRIBINE
     Dosage: YEAR ONE SECOND CYCLE THERAPY
     Route: 048
  3. MAVENCLAD [Suspect]
     Active Substance: CLADRIBINE
     Dosage: YEAR TWO FIRST CYCLE THERAPY
     Route: 048
  4. MAVENCLAD [Suspect]
     Active Substance: CLADRIBINE
     Dosage: YEAR TWO SECOND CYCLE THERAPY
     Route: 048
     Dates: end: 20220301

REACTIONS (1)
  - Myxofibrosarcoma [Recovering/Resolving]
